FAERS Safety Report 19324055 (Version 3)
Quarter: 2021Q4

REPORT INFORMATION
  Report Type: Report from Study
  Country: FR (occurrence: FR)
  Receive Date: 20210528
  Receipt Date: 20211217
  Transmission Date: 20220303
  Serious: Yes (Hospitalization)
  Sender: FDA-Public Use
  Company Number: FR-GLAXOSMITHKLINE-FR2020GSK053170

PATIENT
  Age: 63 Year
  Sex: Female

DRUGS (14)
  1. DOSTARLIMAB [Suspect]
     Active Substance: DOSTARLIMAB
     Indication: Neoplasm
     Dosage: 500 MG
     Route: 042
     Dates: start: 20191126, end: 20191126
  2. DOSTARLIMAB [Suspect]
     Active Substance: DOSTARLIMAB
     Dosage: 1000 MG
     Route: 042
     Dates: start: 20200218, end: 20200218
  3. DOSTARLIMAB [Suspect]
     Active Substance: DOSTARLIMAB
     Dosage: UNK
     Route: 042
     Dates: start: 20200328, end: 20200328
  4. COUMADIN [Concomitant]
     Active Substance: WARFARIN SODIUM
     Indication: Thrombosis prophylaxis
     Dosage: 6 MG, OTHER
     Route: 048
     Dates: start: 201804
  5. METFORMIN PAMOATE [Concomitant]
     Active Substance: METFORMIN PAMOATE
     Indication: Diabetes mellitus
     Dosage: 700 MG, OTHER
     Route: 048
     Dates: start: 201712
  6. ACETAMINOPHEN [Concomitant]
     Active Substance: ACETAMINOPHEN
     Indication: Vulvovaginal pain
     Dosage: 1 DF, PRN
     Route: 048
     Dates: start: 201905
  7. ACETAMINOPHEN [Concomitant]
     Active Substance: ACETAMINOPHEN
     Indication: Enterocolitis haemorrhagic
     Dosage: 1 DF, PRN
     Route: 048
     Dates: start: 20200223
  8. LOVENOX [Concomitant]
     Active Substance: ENOXAPARIN SODIUM
     Indication: Thrombosis prophylaxis
     Dosage: 6000 UNITS, BID
     Route: 058
     Dates: start: 20200307
  9. PHLOROGLUCINOL [Concomitant]
     Active Substance: PHLOROGLUCINOL
     Indication: Enterocolitis haemorrhagic
     Dosage: 1 DF (1 TABLET), PRN
     Route: 048
     Dates: start: 20200223
  10. RACECADOTRIL [Concomitant]
     Active Substance: RACECADOTRIL
     Indication: Enterocolitis haemorrhagic
     Dosage: 1 DF (1 TABLET), BID
     Route: 048
     Dates: start: 20200225
  11. IMODIUM [Concomitant]
     Active Substance: LOPERAMIDE HYDROCHLORIDE
     Indication: Enterocolitis haemorrhagic
     Dosage: 1 DF (1 TABLET), PRN
     Route: 048
     Dates: start: 20200225
  12. PREDNISONE [Concomitant]
     Active Substance: PREDNISONE
     Indication: Enterocolitis haemorrhagic
     Dosage: 40 MG, QD
     Route: 048
     Dates: start: 20200306
  13. PREDNISONE [Concomitant]
     Active Substance: PREDNISONE
     Dosage: 20 MG, QD
     Route: 048
     Dates: start: 20200318
  14. OMEPRAZOLE [Concomitant]
     Active Substance: OMEPRAZOLE
     Indication: Prophylaxis
     Dosage: 20 MG, QD
     Route: 048
     Dates: start: 20200306

REACTIONS (2)
  - Immune-mediated enterocolitis [Recovered/Resolved]
  - Acute haemorrhagic ulcerative colitis [Recovered/Resolved]

NARRATIVE: CASE EVENT DATE: 20200324
